FAERS Safety Report 20430517 (Version 1)
Quarter: 2022Q1

REPORT INFORMATION
  Report Type: Report from Study
  Country: FR (occurrence: FR)
  Receive Date: 20220204
  Receipt Date: 20220204
  Transmission Date: 20220423
  Serious: Yes (Hospitalization)
  Sender: FDA-Public Use
  Company Number: FR-SERVIER-S20009899

PATIENT

DRUGS (6)
  1. ONCASPAR [Suspect]
     Active Substance: PEGASPARGASE
     Indication: Acute lymphocytic leukaemia
     Dosage: 2250 IU, UNK
     Route: 042
     Dates: start: 20200622
  2. TN UNSPECIFIED [Concomitant]
     Indication: Acute lymphocytic leukaemia
     Dosage: 1.3 MG, (D1-CONSOLIDATION)
     Route: 042
     Dates: start: 20200722
  3. TN UNSPECIFIED [Concomitant]
     Indication: Acute lymphocytic leukaemia
     Dosage: 6 MG, (D1-5 CONSOLIDATION)
     Route: 048
     Dates: start: 20200722
  4. TN UNSPECIFIED [Concomitant]
     Indication: Acute lymphocytic leukaemia
     Dosage: 50 MG, (D1-D28-CONSOLIDATION)
     Route: 048
     Dates: start: 20200722
  5. TN UNSPECIFIED [Concomitant]
     Indication: Acute lymphocytic leukaemia
     Dosage: 12 MG, (D2-CONSOLIDATION)
     Route: 037
     Dates: start: 20200723
  6. TN UNSPECIFIED [Concomitant]
     Indication: Acute lymphocytic leukaemia
     Dosage: 22.5 MG, (D8-CONSOLIDATION)
     Route: 048
     Dates: start: 20200729

REACTIONS (2)
  - Herpes zoster [Recovering/Resolving]
  - Hypertriglyceridaemia [Not Recovered/Not Resolved]

NARRATIVE: CASE EVENT DATE: 20200729
